FAERS Safety Report 21785384 (Version 1)
Quarter: 2022Q4

REPORT INFORMATION
  Report Type: Spontaneous
  Country: US (occurrence: None)
  Receive Date: 20221223
  Receipt Date: 20221223
  Transmission Date: 20230112
  Serious: Yes (Hospitalization, Disabling)
  Sender: FDA-Public Use
  Company Number: None

PATIENT
  Age: 71 Year
  Sex: Male

DRUGS (16)
  1. TEMOZOLOMIDE [Suspect]
     Active Substance: TEMOZOLOMIDE
     Indication: Brain neoplasm malignant
     Dosage: FREQUENCY : DAILY;?
     Route: 048
     Dates: start: 20220930, end: 20221125
  2. TEMOZOLOMIDE [Suspect]
     Active Substance: TEMOZOLOMIDE
     Dosage: FREQUENCY : DAILY;?
     Route: 048
  3. BACLOFEN [Concomitant]
     Active Substance: BACLOFEN
  4. DEXAMETHASONE [Concomitant]
     Active Substance: DEXAMETHASONE
  5. DIAZEPAM [Concomitant]
     Active Substance: DIAZEPAM
  6. FLUDROCORTISONE [Concomitant]
     Active Substance: FLUDROCORTISONE
  7. LEVETIRACETAM [Concomitant]
     Active Substance: LEVETIRACETAM
  8. METFORMIN [Concomitant]
     Active Substance: METFORMIN HYDROCHLORIDE
  9. METHOCARBAMOL [Concomitant]
     Active Substance: METHOCARBAMOL
  10. MIDODRINE [Concomitant]
     Active Substance: MIDODRINE
  11. OMEPRAZOLE [Concomitant]
     Active Substance: OMEPRAZOLE
  12. OXYCODONE [Concomitant]
     Active Substance: OXYCODONE
  13. POTASSIUM CHLORIDE [Concomitant]
     Active Substance: POTASSIUM CHLORIDE
  14. TAMSULOSIN [Concomitant]
     Active Substance: TAMSULOSIN
  15. TRAZODONE [Concomitant]
     Active Substance: TRAZODONE HYDROCHLORIDE
  16. VITAMIN D2 (ERGO) [Concomitant]

REACTIONS (2)
  - Seizure [None]
  - Pneumonia [None]

NARRATIVE: CASE EVENT DATE: 20221125
